FAERS Safety Report 6811330-8 (Version None)
Quarter: 2010Q2

REPORT INFORMATION
  Report Type: 
  Country: None (occurrence: None)
  Receive Date: 20100630
  Receipt Date: 20100624
  Transmission Date: 20101027
  Serious: Yes (Hospitalization)
  Sender: FDA-Public Use
  Company Number: US-MERCK-0608USA00453

PATIENT
  Age: 62 Year
  Sex: Male
  Weight: 75 kg

DRUGS (7)
  1. VYTORIN [Suspect]
     Indication: BLOOD CHOLESTEROL INCREASED
     Route: 048
     Dates: start: 20050101
  2. ASPIRIN [Concomitant]
     Indication: STENT PLACEMENT
     Route: 065
  3. PLAVIX [Concomitant]
     Indication: STENT PLACEMENT
     Route: 065
  4. TYLENOL [Concomitant]
     Route: 065
  5. OMEGA-3 MARINE TRIGLYCERIDES [Concomitant]
     Route: 065
  6. CHONDROITIN SULFATE SODIUM AND GLUCOSAMINE SULFATE [Concomitant]
     Route: 065
  7. COREG [Concomitant]
     Route: 065

REACTIONS (7)
  - CORONARY ARTERY DISEASE [None]
  - DRUG ADMINISTRATION ERROR [None]
  - JOINT DISLOCATION [None]
  - MYALGIA [None]
  - MYOCARDIAL INFARCTION [None]
  - RIB FRACTURE [None]
  - ROAD TRAFFIC ACCIDENT [None]
